FAERS Safety Report 8227721-7 (Version None)
Quarter: 2012Q1

REPORT INFORMATION
  Report Type: 
  Country: None (occurrence: None)
  Receive Date: 20120322
  Receipt Date: 20120312
  Transmission Date: 20120608
  Serious: Yes (Life-Threatening)
  Sender: FDA-Public Use
  Company Number: IL-NOVOPROD-347407

PATIENT
  Age: 66 Year
  Sex: Female
  Weight: 76 kg

DRUGS (6)
  1. LEVOTHYROXINE SODIUM [Concomitant]
  2. PEDIFEN [Concomitant]
  3. GLUCOPHAGE [Concomitant]
  4. REPAGLINIDE [Concomitant]
  5. RAMIPRIL [Concomitant]
  6. VICTOZA [Suspect]
     Indication: DIABETES MELLITUS
     Dosage: 1.8 MG, QD
     Route: 065
     Dates: start: 20100701

REACTIONS (1)
  - THYROID CANCER [None]
